FAERS Safety Report 7435179-0 (Version None)
Quarter: 2011Q2

REPORT INFORMATION
  Report Type: 
  Country: None (occurrence: None)
  Receive Date: 20110425
  Receipt Date: 20110419
  Transmission Date: 20111010
  Serious: Yes (Death, Hospitalization)
  Sender: FDA-Public Use
  Company Number: PHHY2011GB33152

PATIENT
  Age: 62 Year
  Sex: Male

DRUGS (7)
  1. ISONIAZID [Concomitant]
     Dosage: UNK
  2. RIFAMPICIN [Concomitant]
     Dosage: UNK
  3. CYCLOSPORINE [Suspect]
     Indication: CHRONIC LYMPHOCYTIC LEUKAEMIA
  4. DOXYCYCLINE [Concomitant]
     Dosage: 100 MG, BID
  5. PREDNISOLONE [Suspect]
     Indication: CHRONIC LYMPHOCYTIC LEUKAEMIA
  6. PYRAZINAMIDE [Concomitant]
     Dosage: UNK
  7. ETHAMBUTOL HYDROCHLORIDE [Concomitant]
     Dosage: UNK

REACTIONS (9)
  - RESPIRATORY TRACT INFECTION [None]
  - MYCOBACTERIUM MARINUM INFECTION [None]
  - DYSPNOEA [None]
  - SEPSIS [None]
  - PYREXIA [None]
  - ERYTHEMA [None]
  - GRANULOMA [None]
  - COUGH [None]
  - NODULE [None]
